FAERS Safety Report 13829068 (Version 1)
Quarter: 2017Q3

REPORT INFORMATION
  Report Type: Spontaneous
  Country: US (occurrence: US)
  Receive Date: 20170802
  Receipt Date: 20170802
  Transmission Date: 20171127
  Serious: Yes (Hospitalization)
  Sender: FDA-Public Use
  Company Number: None

PATIENT
  Sex: Female

DRUGS (4)
  1. FORTEO [Suspect]
     Active Substance: TERIPARATIDE
     Indication: PATHOLOGICAL FRACTURE
     Route: 058
  2. FORTEO [Suspect]
     Active Substance: TERIPARATIDE
     Indication: ANKLE FRACTURE
     Route: 058
  3. FORTEO [Suspect]
     Active Substance: TERIPARATIDE
     Indication: SENILE OSTEOPOROSIS
     Route: 058
  4. FORTEO [Suspect]
     Active Substance: TERIPARATIDE
     Indication: FOOT FRACTURE
     Route: 058

REACTIONS (2)
  - Peripheral swelling [None]
  - Pericardial effusion [None]
